FAERS Safety Report 12959577 (Version 13)
Quarter: 2018Q2

REPORT INFORMATION
  Report Type: Spontaneous
  Country: US (occurrence: US)
  Receive Date: 20161121
  Receipt Date: 20180423
  Transmission Date: 20180711
  Serious: No
  Sender: FDA-Public Use
  Company Number: US-ACTELION-A-US2016-145753

PATIENT
  Age: 43 Year
  Sex: Female

DRUGS (10)
  1. OPSUMIT [Suspect]
     Active Substance: MACITENTAN
     Indication: PULMONARY ARTERIAL HYPERTENSION
     Dosage: 10 MG, QD
     Route: 048
     Dates: start: 20151013
  2. UPTRAVI [Suspect]
     Active Substance: SELEXIPAG
     Dosage: 200 MCG, BID
     Route: 048
  3. UPTRAVI [Suspect]
     Active Substance: SELEXIPAG
     Dosage: 800 MCG, BID
     Route: 048
     Dates: start: 20170314
  4. ALBUTEROL. [Concomitant]
     Active Substance: ALBUTEROL
  5. FUROSEMIDE. [Concomitant]
     Active Substance: FUROSEMIDE
  6. DIGOXIN. [Concomitant]
     Active Substance: DIGOXIN
  7. UPTRAVI [Suspect]
     Active Substance: SELEXIPAG
     Indication: PULMONARY ARTERIAL HYPERTENSION
     Dosage: 1600 MCG, BID
     Route: 048
     Dates: start: 20161129
  8. UPTRAVI [Suspect]
     Active Substance: SELEXIPAG
     Dosage: 400 MCG, BID
     Route: 048
     Dates: start: 20161109
  9. IRON [Concomitant]
     Active Substance: IRON
  10. ADCIRCA [Concomitant]
     Active Substance: TADALAFIL

REACTIONS (15)
  - Headache [Unknown]
  - Dyspnoea [Unknown]
  - Pain [Unknown]
  - Sputum abnormal [Recovering/Resolving]
  - Drug dose omission [Unknown]
  - Flushing [Unknown]
  - Bronchitis [Not Recovered/Not Resolved]
  - Restlessness [Unknown]
  - Myalgia [Unknown]
  - Pain in jaw [Unknown]
  - Dizziness [Unknown]
  - Diarrhoea [Unknown]
  - Rash [Not Recovered/Not Resolved]
  - Hypotension [Unknown]
  - Nausea [Unknown]

NARRATIVE: CASE EVENT DATE: 20161109
